FAERS Safety Report 5611916-2 (Version None)
Quarter: 2008Q1

REPORT INFORMATION
  Report Type: 
  Country: None (occurrence: None)
  Receive Date: 20080131
  Receipt Date: 20080131
  Transmission Date: 20080703
  Serious: No
  Sender: FDA-Public Use
  Company Number: None

PATIENT
  Age: 68 Year
  Sex: Male
  Weight: 99 kg

DRUGS (1)
  1. VALSARTAN [Suspect]
     Indication: HYPERTENSIVE HEART DISEASE
     Dosage: 160 MG BID PO
     Route: 048
     Dates: start: 20080122, end: 20080124

REACTIONS (1)
  - BLOOD CREATININE INCREASED [None]
